FAERS Safety Report 6463542-3 (Version None)
Quarter: 2009Q4

REPORT INFORMATION
  Report Type: 
  Country: None (occurrence: None)
  Receive Date: 20091123
  Receipt Date: 20091106
  Transmission Date: 20100525
  Serious: Yes (Other)
  Sender: FDA-Public Use
  Company Number: 002310

PATIENT
  Age: 60 Year
  Sex: Male

DRUGS (6)
  1. MACUGEN [Suspect]
     Indication: MACULAR DEGENERATION
     Dates: start: 20081125, end: 20090427
  2. ISODINE (POVIDONE-IODINE) [Concomitant]
  3. XYLOCAINE [Concomitant]
  4. GATIFLOXACIN [Concomitant]
  5. MEIACT (CEFDITOREN PIVOXIL) [Concomitant]
  6. MYDRIN P (PHENYLEPHRINE HYDROCHLORIDE, TROPICAMIDE) [Concomitant]

REACTIONS (3)
  - DRUG INEFFECTIVE [None]
  - OCULAR HYPERTENSION [None]
  - VISUAL IMPAIRMENT [None]
